FAERS Safety Report 7958783-X (Version None)
Quarter: 2011Q4

REPORT INFORMATION
  Report Type: 
  Country: None (occurrence: None)
  Receive Date: 20111206
  Receipt Date: 20111122
  Transmission Date: 20120403
  Serious: Yes (Life-Threatening)
  Sender: FDA-Public Use
  Company Number: DE-RANBAXY-2009RR-23500

PATIENT
  Age: 29 Year
  Sex: Male
  Weight: 85.7 kg

DRUGS (5)
  1. IBUPROFEN [Suspect]
     Indication: PAIN
     Dosage: 600 MG, UNK
     Route: 048
     Dates: start: 20080912, end: 20080920
  2. PEG-INTRON [Concomitant]
     Indication: HEPATITIS C
     Dosage: UNK
     Route: 058
     Dates: start: 20080401, end: 20081003
  3. REBETOL [Concomitant]
     Indication: HEPATITIS C
     Dosage: UNK
     Route: 048
     Dates: start: 20080401
  4. REBETOL [Concomitant]
     Dosage: 200 2-0-3
     Route: 065
     Dates: start: 20081016
  5. KOGENATE [Concomitant]
     Indication: FACTOR VIII DEFICIENCY
     Route: 040

REACTIONS (1)
  - HAEMORRHAGE [None]
